FAERS Safety Report 12065651 (Version 1)
Quarter: 2016Q1

REPORT INFORMATION
  Report Type: Spontaneous
  Country: US (occurrence: None)
  Receive Date: 20160210
  Receipt Date: 20160210
  Transmission Date: 20160526
  Serious: Yes (Life-Threatening, Hospitalization)
  Sender: FDA-Public Use
  Company Number: None

PATIENT
  Age: 74 Year
  Sex: Female
  Weight: 87.09 kg

DRUGS (12)
  1. FENTANYL TRANSDERMAL SYSTEM [Concomitant]
     Active Substance: FENTANYL
  2. CALCIUM [Concomitant]
     Active Substance: CALCIUM
  3. LISINOPRIL. [Concomitant]
     Active Substance: LISINOPRIL
  4. FLAX SEED [Concomitant]
     Active Substance: FLAX SEED
  5. SERTRALINE [Concomitant]
     Active Substance: SERTRALINE HYDROCHLORIDE
  6. PANTOPRAZOLE SODIUM. [Concomitant]
     Active Substance: PANTOPRAZOLE SODIUM
  7. SULFAMETHORAZOLE [Concomitant]
  8. STOOL SOFTENER [Concomitant]
     Active Substance: DOCUSATE CALCIUM
  9. OSTEO BI-FLEX [Concomitant]
     Active Substance: CHONDROITIN SULFATE A\GLUCOSAMINE
  10. IBUPROFEN. [Suspect]
     Active Substance: IBUPROFEN
     Indication: PROCEDURAL PAIN
     Route: 048
     Dates: start: 20151028, end: 20151031
  11. FEXOFENADINE HCL [Concomitant]
     Active Substance: FEXOFENADINE HYDROCHLORIDE
  12. MULTI VITAMIN [Concomitant]
     Active Substance: VITAMINS

REACTIONS (2)
  - Haematemesis [None]
  - Gastric haemorrhage [None]

NARRATIVE: CASE EVENT DATE: 20151031
